FAERS Safety Report 17304908 (Version 5)
Quarter: 2022Q1

REPORT INFORMATION
  Report Type: Spontaneous
  Country: US (occurrence: US)
  Receive Date: 20200123
  Receipt Date: 20220207
  Transmission Date: 20220423
  Serious: No
  Sender: FDA-Public Use
  Company Number: US-PFIZER INC-2020029555

PATIENT
  Age: 78 Year
  Sex: Female

DRUGS (1)
  1. XELJANZ [Suspect]
     Active Substance: TOFACITINIB CITRATE
     Dosage: 5 MG

REACTIONS (7)
  - Hypoacusis [Unknown]
  - Pain [Unknown]
  - Feeding disorder [Unknown]
  - Insomnia [Unknown]
  - Illness [Unknown]
  - Gait disturbance [Unknown]
  - Weight decreased [Unknown]
